FAERS Safety Report 7104722-3 (Version None)
Quarter: 2010Q4

REPORT INFORMATION
  Report Type: 
  Country: None (occurrence: None)
  Receive Date: 20101109
  Receipt Date: 20101103
  Transmission Date: 20110411
  Serious: Yes (Other)
  Sender: FDA-Public Use
  Company Number: 2010MA004209

PATIENT
  Age: 21 Year
  Sex: Male

DRUGS (3)
  1. TRAMADOL HYDROCHLORIDE [Suspect]
     Indication: ARTHRALGIA
     Dosage: 300 MG PO
     Route: 048
     Dates: start: 20100729
  2. NEFOPAM [Concomitant]
  3. AMITRIPTYLINE [Concomitant]

REACTIONS (2)
  - CONVULSION [None]
  - OVERDOSE [None]
